FAERS Safety Report 7176417-1 (Version None)
Quarter: 2010Q4

REPORT INFORMATION
  Report Type: 
  Country: None (occurrence: None)
  Receive Date: 20101220
  Receipt Date: 20101210
  Transmission Date: 20110411
  Serious: Yes (Death, Other)
  Sender: FDA-Public Use
  Company Number: JP-PFIZER INC-2010146209

PATIENT
  Sex: Male
  Weight: 48 kg

DRUGS (13)
  1. LYRICA [Suspect]
     Indication: POST HERPETIC NEURALGIA
     Dosage: 3 DF, 2X/DAY
     Route: 048
     Dates: start: 20101101, end: 20101103
  2. LYRICA [Suspect]
     Dosage: 1 DF, 2X/DAY
     Route: 048
     Dates: start: 20101104, end: 20101106
  3. AMARYL [Concomitant]
     Dosage: UNK
  4. PENTAZOCINE LACTATE [Concomitant]
     Dosage: 25 MG, 3X/DAY
     Dates: start: 20101102, end: 20101103
  5. BLOPRESS [Concomitant]
     Dosage: UNK, 1X/DAY
  6. BASEN [Concomitant]
     Dosage: UNK, 3X/DAY
  7. MAGNESIUM OXIDE [Concomitant]
     Dosage: UNK, 3X/DAY
  8. GLYSENNID [Concomitant]
     Dosage: UNK, 1X/DAY
  9. LASIX [Concomitant]
     Dosage: UNK, 2X/DAY
  10. EURODIN [Concomitant]
     Dosage: UNK, 1X/DAY
  11. VOLTAREN [Concomitant]
     Dosage: UNK, AS NEEDED
     Route: 054
     Dates: start: 20101101, end: 20101105
  12. SODIUM PICOSULFATE [Concomitant]
     Dosage: UNK, AS NEEDED
     Dates: start: 20101105
  13. LANTUS [Concomitant]
     Dosage: UNK
     Dates: start: 20101107

REACTIONS (3)
  - APATHY [None]
  - DEATH [None]
  - MUSCULAR WEAKNESS [None]
